FAERS Safety Report 23640364 (Version 2)
Quarter: 2024Q2

REPORT INFORMATION
  Report Type: Spontaneous
  Country: JP (occurrence: JP)
  Receive Date: 20240317
  Receipt Date: 20240423
  Transmission Date: 20240716
  Serious: No
  Sender: FDA-Public Use
  Company Number: JP-MSD-M2024-09649

PATIENT
  Age: 57 Year
  Sex: Male

DRUGS (9)
  1. LAGEVRIO [Suspect]
     Active Substance: MOLNUPIRAVIR
     Indication: COVID-19 treatment
     Dosage: 800 MILLIGRAM, BID
     Route: 048
     Dates: start: 20240301, end: 20240303
  2. ASPIRIN [Concomitant]
     Active Substance: ASPIRIN
     Indication: Myocardial infarction
     Dosage: 100, QD
     Route: 048
     Dates: start: 20110530
  3. ATENOLOL [Concomitant]
     Active Substance: ATENOLOL
     Indication: Myocardial infarction
     Dosage: 25, QD
     Route: 048
     Dates: start: 20110530
  4. LEVOTHYROXINE [Concomitant]
     Active Substance: LEVOTHYROXINE\LEVOTHYROXINE SODIUM
     Dosage: UNK
     Route: 065
  5. ATORVASTATIN CALCIUM TRIHYDRATE [Concomitant]
     Active Substance: ATORVASTATIN CALCIUM TRIHYDRATE
     Indication: Dyslipidaemia
     Dosage: 10, QD
     Route: 048
     Dates: start: 20110530
  6. TRANEXAMIC ACID [Concomitant]
     Active Substance: TRANEXAMIC ACID
     Indication: COVID-19
     Dosage: 250, TID
     Route: 048
     Dates: start: 20240301, end: 20240305
  7. CARBOCYSTEINE [Concomitant]
     Active Substance: CARBOCYSTEINE
     Indication: COVID-19
     Dosage: 500, TID
     Route: 048
     Dates: start: 20240301, end: 20240305
  8. ACETAMINOPHEN [Concomitant]
     Active Substance: ACETAMINOPHEN
     Indication: COVID-19
     Dosage: 400, PRN
     Route: 048
     Dates: start: 20240301, end: 20240304
  9. ENALAPRIL MALEATE [Concomitant]
     Active Substance: ENALAPRIL MALEATE
     Indication: Hypertension
     Dosage: 5 MILLIGRAM, QD
     Route: 048
     Dates: start: 20110530

REACTIONS (1)
  - Urticaria [Recovering/Resolving]

NARRATIVE: CASE EVENT DATE: 20240303
